FAERS Safety Report 23274356 (Version 1)
Quarter: 2023Q4

REPORT INFORMATION
  Report Type: Spontaneous
  Country: US (occurrence: US)
  Receive Date: 20231208
  Receipt Date: 20231208
  Transmission Date: 20240109
  Serious: No
  Sender: FDA-Public Use
  Company Number: US-AUROBINDO-AUR-APL-2022-054695

PATIENT
  Age: 43 Year
  Sex: Female

DRUGS (1)
  1. PROGESTERONE [Suspect]
     Active Substance: PROGESTERONE
     Indication: Infertility tests
     Dosage: 1 DOSAGE FORM, 3 TIMES A DAY ?(01 CAPSULE VAGINALLY 3 TIMES A DAY)
     Route: 065
     Dates: start: 20220906

REACTIONS (1)
  - Burning sensation [Unknown]
